FAERS Safety Report 19406224 (Version 1)
Quarter: 2021Q2

REPORT INFORMATION
  Report Type: Spontaneous
  Country: DE (occurrence: DE)
  Receive Date: 20210611
  Receipt Date: 20210611
  Transmission Date: 20210717
  Serious: Yes (Hospitalization)
  Sender: FDA-Public Use
  Company Number: DE-TEVA-2021-DE-1920606

PATIENT
  Age: 54 Year
  Sex: Female

DRUGS (3)
  1. VENLAFAXIN [Suspect]
     Active Substance: VENLAFAXINE HYDROCHLORIDE
     Dosage: 75 MILLIGRAM DAILY;  1?0?0?0
  2. ZOPICLON [Concomitant]
     Active Substance: ZOPICLONE
     Dosage: 3.75 MILLIGRAM DAILY; 0?0?0?1
  3. PREGABALIN. [Suspect]
     Active Substance: PREGABALIN
     Dosage: 50 MG, DISCONTINUED FOR A WEEK

REACTIONS (4)
  - Depressed mood [Unknown]
  - Hypertension [Unknown]
  - Product dispensing error [Unknown]
  - General physical health deterioration [Unknown]
